FAERS Safety Report 14189036 (Version 3)
Quarter: 2018Q4

REPORT INFORMATION
  Report Type: Spontaneous
  Country: US (occurrence: US)
  Receive Date: 20171115
  Receipt Date: 20181004
  Transmission Date: 20190204
  Serious: No
  Sender: FDA-Public Use
  Company Number: US-ASTRAZENECA-2017SF15563

PATIENT
  Age: 884 Month
  Sex: Female
  Weight: 77.1 kg

DRUGS (1)
  1. TUDORZA PRESSAIR [Suspect]
     Active Substance: ACLIDINIUM BROMIDE
     Indication: CHRONIC OBSTRUCTIVE PULMONARY DISEASE
     Dosage: 400 MCG 1 PUFF TWICE PER DAY
     Route: 055
     Dates: start: 2015

REACTIONS (7)
  - Seasonal allergy [Unknown]
  - Rhinorrhoea [Unknown]
  - Product dose omission [Unknown]
  - Lacrimation increased [Unknown]
  - Product quality issue [Unknown]
  - Dyspnoea [Unknown]
  - Underdose [Unknown]

NARRATIVE: CASE EVENT DATE: 201710
